FAERS Safety Report 7382334-4 (Version None)
Quarter: 2011Q1

REPORT INFORMATION
  Report Type: 
  Country: None (occurrence: None)
  Receive Date: 20110329
  Receipt Date: 20110209
  Transmission Date: 20110831
  Serious: No
  Sender: FDA-Public Use
  Company Number: US-BAYER-2011-014378

PATIENT
  Age: 16 Year
  Sex: Female

DRUGS (1)
  1. BEYAZ [Suspect]
     Indication: ABDOMINAL PAIN UPPER
     Dosage: UNK
     Dates: start: 20110101

REACTIONS (1)
  - DEPRESSIVE SYMPTOM [None]
